FAERS Safety Report 5658169-7 (Version None)
Quarter: 2008Q1

REPORT INFORMATION
  Report Type: 
  Country: None (occurrence: None)
  Receive Date: 20080310
  Receipt Date: 20070205
  Transmission Date: 20080703
  Serious: No
  Sender: FDA-Public Use
  Company Number: US-BAYER-200710110BCC

PATIENT
  Age: 83 Year
  Sex: Female
  Weight: 68 kg

DRUGS (7)
  1. ALEVE [Suspect]
     Indication: DRUG USE FOR UNKNOWN INDICATION
     Dosage: TOTAL DAILY DOSE: 220 MG  UNIT DOSE: 220 MG
     Route: 048
     Dates: start: 20070110
  2. SYNTHROID [Concomitant]
  3. CYTOMEL [Concomitant]
  4. AXID [Concomitant]
  5. ZYRTEC [Concomitant]
  6. ALBUTEROL [Concomitant]
  7. ACTONEL [Concomitant]

REACTIONS (2)
  - FOREIGN BODY TRAUMA [None]
  - THROAT TIGHTNESS [None]
